FAERS Safety Report 11123242 (Version 1)
Quarter: 2015Q2

REPORT INFORMATION
  Report Type: Spontaneous
  Country: US (occurrence: US)
  Receive Date: 20150519
  Receipt Date: 20150519
  Transmission Date: 20150821
  Serious: No
  Sender: FDA-Public Use
  Company Number: US-AUXILIUM PHARMACEUTICALS INC.-201502042

PATIENT
  Age: 64 Year
  Sex: Male

DRUGS (9)
  1. BIOTIN [Concomitant]
     Active Substance: BIOTIN
  2. XIAFLEX [Suspect]
     Active Substance: COLLAGENASE CLOSTRIDIUM HISTOLYTICUM
     Indication: PEYRONIE^S DISEASE
     Route: 026
     Dates: start: 20150113, end: 20150113
  3. PEPCID [Concomitant]
     Active Substance: FAMOTIDINE
  4. L-ARGININE [Concomitant]
     Active Substance: ARGININE
  5. ALCAR [Concomitant]
     Active Substance: ACETYLCARNITINE
  6. NEXIUM [Concomitant]
     Active Substance: ESOMEPRAZOLE MAGNESIUM
  7. XIAFLEX [Suspect]
     Active Substance: COLLAGENASE CLOSTRIDIUM HISTOLYTICUM
     Route: 026
     Dates: start: 20150115, end: 20150115
  8. UBIQUINOL [Concomitant]
  9. CIALIS [Concomitant]
     Active Substance: TADALAFIL

REACTIONS (3)
  - Injection site bruising [Recovered/Resolved]
  - Injection site swelling [Recovered/Resolved]
  - Injection site discolouration [Recovered/Resolved]

NARRATIVE: CASE EVENT DATE: 201501
